FAERS Safety Report 9514758 (Version 1)
Quarter: 2013Q1

REPORT INFORMATION
  Report Type: Spontaneous
  Country: US (occurrence: None)
  Receive Date: 20130305
  Receipt Date: 20130305
  Transmission Date: 20140127
  Serious: Yes (Hospitalization)
  Sender: FDA-Public Use
  Company Number: 163-21880-12123147

PATIENT
  Age: 50 Year
  Sex: Female

DRUGS (1)
  1. REVLIMID [Suspect]
     Dosage: 25 MG, 1 IN 1 D, PO (05NOV2012 ON HIKD)
     Route: 048
     Dates: start: 201207

REACTIONS (2)
  - Pneumonia [None]
  - White blood cell count decreased [None]
